FAERS Safety Report 4398278-6 (Version None)
Quarter: 2004Q3

REPORT INFORMATION
  Report Type: 
  Country: None (occurrence: None)
  Receive Date: 20040712
  Receipt Date: 20040702
  Transmission Date: 20050211
  Serious: Yes (Disabling)
  Sender: FDA-Public Use
  Company Number: 2004-06-1139

PATIENT
  Age: 58 Year
  Sex: Male
  Weight: 89 kg

DRUGS (2)
  1. INTRON A [Suspect]
     Indication: MALIGNANT MELANOMA
     Dates: start: 20040225
  2. ACETAMINOPHEN [Concomitant]

REACTIONS (4)
  - MYALGIA [None]
  - PARAESTHESIA [None]
  - POST PROCEDURAL PAIN [None]
  - SCIATICA [None]
